FAERS Safety Report 7740988-4 (Version None)
Quarter: 2011Q3

REPORT INFORMATION
  Report Type: 
  Country: None (occurrence: None)
  Receive Date: 20110909
  Receipt Date: 20110124
  Transmission Date: 20111222
  Serious: No
  Sender: FDA-Public Use
  Company Number: US-BAYER-2011-010433

PATIENT
  Sex: Male

DRUGS (1)
  1. MIRENA [Suspect]
     Route: 003

REACTIONS (1)
  - PENILE PAIN [None]
